FAERS Safety Report 8924415 (Version 1)
Quarter: 2012Q4

REPORT INFORMATION
  Report Type: Spontaneous
  Country: US (occurrence: None)
  Receive Date: 20121116
  Receipt Date: 20121116
  Transmission Date: 20130627
  Serious: Yes (Hospitalization, Other)
  Sender: FDA-Public Use
  Company Number: 141604

PATIENT
  Age: 18 Year
  Sex: Female
  Weight: 63 kg

DRUGS (1)
  1. ETOPOSIDE [Suspect]
     Indication: RHABDOMYOSARCOMA

REACTIONS (13)
  - Oesophagitis [None]
  - Stomatitis [None]
  - Epistaxis [None]
  - Rectal haemorrhage [None]
  - Colitis [None]
  - Weight decreased [None]
  - Gastric haemorrhage [None]
  - Anaemia [None]
  - Pleural effusion [None]
  - Rectal fissure [None]
  - Hypophagia [None]
  - Stomatitis [None]
  - Pancytopenia [None]
